FAERS Safety Report 7367660-7 (Version None)
Quarter: 2011Q1

REPORT INFORMATION
  Report Type: 
  Country: None (occurrence: None)
  Receive Date: 20110322
  Receipt Date: 20110309
  Transmission Date: 20110831
  Serious: Yes (Death)
  Sender: FDA-Public Use
  Company Number: US-MYLANLABS-2011S1004884

PATIENT
  Age: 19 Month
  Sex: Female

DRUGS (3)
  1. AMNESTEEM [Suspect]
     Indication: BRAIN NEOPLASM
     Route: 048
     Dates: end: 20110201
  2. CLARAVIS [Suspect]
     Indication: BRAIN NEOPLASM
     Route: 048
     Dates: start: 20100901
  3. ZOLINZA [Concomitant]

REACTIONS (1)
  - BRAIN NEOPLASM [None]
